FAERS Safety Report 21770273 (Version 1)
Quarter: 2022Q4

REPORT INFORMATION
  Report Type: Spontaneous
  Country: FR (occurrence: FR)
  Receive Date: 20221223
  Receipt Date: 20221223
  Transmission Date: 20230113
  Serious: Yes (Hospitalization)
  Sender: FDA-Public Use
  Company Number: None

PATIENT
  Age: 68 Year
  Sex: Female
  Weight: 130 kg

DRUGS (4)
  1. CANDESARTAN CILEXETIL [Suspect]
     Active Substance: CANDESARTAN CILEXETIL
     Indication: Hypertension
     Dosage: UNIT DOSE: 16 MG , FREQUENCY TIME : 1 DAY, THERAPY START DATE : ASKU
  2. SIMVASTATIN [Suspect]
     Active Substance: SIMVASTATIN
     Indication: Dyslipidaemia
     Dosage: UNIT DOSE: 20 MG , FREQUENCY TIME : 1 DAY, THERAPY START DATE : ASKU
     Dates: end: 20220713
  3. METFORMIN [Suspect]
     Active Substance: METFORMIN HYDROCHLORIDE
     Indication: Type 2 diabetes mellitus
     Dosage: UNIT DOSE: 1500 MG , FREQUENCY TIME : 1 DAY, THERAPY START DATE : ASKU
  4. COMIRNATY [Suspect]
     Active Substance: TOZINAMERAN
     Indication: COVID-19 immunisation
     Dosage: R2, COMIRNATY 30 MICROGRAMS/DOSE. MRNA (MODIFIED NUCLEOSIDE) VACCINE AGAINST COVID-19, UNIT DOSE: 1
     Dates: start: 20220607, end: 20220607

REACTIONS (1)
  - Cerebral venous thrombosis [Recovered/Resolved]

NARRATIVE: CASE EVENT DATE: 20220711
